FAERS Safety Report 16201247 (Version 1)
Quarter: 2019Q2

REPORT INFORMATION
  Report Type: Other
  Country: CN (occurrence: CN)
  Receive Date: 20190416
  Receipt Date: 20190416
  Transmission Date: 20190711
  Serious: Yes (Hospitalization)
  Sender: FDA-Public Use
  Company Number: CN-JIANGSU HENGRUI MEDICINE CO., LTD.-2065861

PATIENT
  Age: 61 Year
  Sex: Male
  Weight: 56 kg

DRUGS (2)
  1. IRINOTECAN HYDROCHLORIDE INJECTION, 20 MG/ML (2 ML AND 5 ML VIALS) (AN [Suspect]
     Active Substance: IRINOTECAN HYDROCHLORIDE
     Indication: NEOPLASM
     Route: 040
     Dates: start: 20181103, end: 20181103
  2. GLUCOSE (DEXTROSE MONOHYDRATE) [Concomitant]
     Active Substance: DEXTROSE MONOHYDRATE
     Route: 041
     Dates: start: 20181103, end: 20181103

REACTIONS (1)
  - Enteritis [Recovered/Resolved]

NARRATIVE: CASE EVENT DATE: 20181103
